FAERS Safety Report 10426343 (Version 1)
Quarter: 2014Q3

REPORT INFORMATION
  Report Type: Spontaneous
  Country: US (occurrence: None)
  Receive Date: 20140902
  Receipt Date: 20140902
  Transmission Date: 20150326
  Serious: Yes (Other)
  Sender: FDA-Public Use
  Company Number: None

PATIENT
  Age: 61 Year
  Sex: Female
  Weight: 56.7 kg

DRUGS (2)
  1. DULOXETINE [Suspect]
     Active Substance: DULOXETINE
     Indication: DEPRESSION
     Dosage: 60 MG 1 ONCE DAILY MOUTH
     Route: 048
     Dates: end: 20140807
  2. DULOXETINE [Suspect]
     Active Substance: DULOXETINE
     Indication: ANXIETY
     Dosage: 60 MG 1 ONCE DAILY MOUTH
     Route: 048
     Dates: end: 20140807

REACTIONS (1)
  - Nightmare [None]

NARRATIVE: CASE EVENT DATE: 20140810
